FAERS Safety Report 6848769-0 (Version None)
Quarter: 2010Q3

REPORT INFORMATION
  Report Type: 
  Country: None (occurrence: None)
  Receive Date: 20100716
  Receipt Date: 20070909
  Transmission Date: 20110219
  Serious: No
  Sender: FDA-Public Use
  Company Number: US-PFIZER INC-2007076125

PATIENT
  Sex: Male
  Weight: 85.7 kg

DRUGS (2)
  1. CHANTIX [Suspect]
     Indication: SMOKING CESSATION THERAPY
     Dates: start: 20070902
  2. CLARITIN [Concomitant]
     Indication: MULTIPLE ALLERGIES

REACTIONS (3)
  - ANXIETY [None]
  - HEART RATE INCREASED [None]
  - NAUSEA [None]
